FAERS Safety Report 12290536 (Version 5)
Quarter: 2016Q2

REPORT INFORMATION
  Report Type: Spontaneous
  Country: AU (occurrence: AU)
  Receive Date: 20160421
  Receipt Date: 20160510
  Transmission Date: 20160815
  Serious: Yes (Death, Hospitalization)
  Sender: FDA-Public Use
  Company Number: AU-JNJFOC-20160416543

PATIENT
  Age: 60 Year
  Sex: Male

DRUGS (1)
  1. STELARA [Suspect]
     Active Substance: USTEKINUMAB
     Indication: PSORIASIS
     Dosage: PATIENT HAD RECEIVED 2 DOSES OF STELARA (WEEK 0, 4) BEFORE DEATH.
     Route: 058
     Dates: start: 20160108

REACTIONS (1)
  - Haemophilus infection [Fatal]

NARRATIVE: CASE EVENT DATE: 20160309
